FAERS Safety Report 5311995-6 (Version None)
Quarter: 2007Q2

REPORT INFORMATION
  Report Type: 
  Country: None (occurrence: None)
  Receive Date: 20070430
  Receipt Date: 20060515
  Transmission Date: 20071010
  Serious: No
  Sender: FDA-Public Use
  Company Number: 2006UW09384

PATIENT
  Sex: Female

DRUGS (11)
  1. NEXIUM [Suspect]
     Route: 048
  2. SEROQUEL [Suspect]
     Route: 048
  3. GABITRIL [Suspect]
     Indication: CONVULSION
     Route: 048
     Dates: start: 20060111
  4. GABITRIL [Suspect]
     Indication: BIPOLAR DISORDER
     Route: 048
     Dates: start: 20060111
  5. PHENYTOIN [Suspect]
  6. NEURONTIN [Suspect]
  7. DIGITEK [Suspect]
  8. ABILIFY [Suspect]
  9. ADVAIR DISKUS 100/50 [Suspect]
  10. OXAZEPAM [Suspect]
  11. SYNTHROID [Suspect]

REACTIONS (2)
  - AMMONIA INCREASED [None]
  - BLOOD ALKALINE PHOSPHATASE INCREASED [None]
